FAERS Safety Report 10520621 (Version 1)
Quarter: 2014Q4

REPORT INFORMATION
  Report Type: Spontaneous
  Country: US (occurrence: US)
  Receive Date: 20141015
  Receipt Date: 20141015
  Transmission Date: 20150528
  Serious: Yes (Hospitalization)
  Sender: FDA-Public Use
  Company Number: US-SA-2013SA119344

PATIENT
  Sex: Female

DRUGS (5)
  1. GLIPIZIDE. [Suspect]
     Active Substance: GLIPIZIDE
     Route: 065
  2. HYDROCHLOROTHIAZIDE. [Suspect]
     Active Substance: HYDROCHLOROTHIAZIDE
     Route: 065
  3. LOPRESSOR [Suspect]
     Active Substance: METOPROLOL TARTRATE
     Route: 065
  4. AVAPRO [Suspect]
     Active Substance: IRBESARTAN
     Route: 065
  5. AVALIDE [Suspect]
     Active Substance: HYDROCHLOROTHIAZIDE\IRBESARTAN
     Route: 065

REACTIONS (2)
  - Anxiety [Unknown]
  - Myocardial infarction [Unknown]
